FAERS Safety Report 19883474 (Version 6)
Quarter: 2023Q2

REPORT INFORMATION
  Report Type: Report from Study
  Country: US (occurrence: US)
  Receive Date: 20210926
  Receipt Date: 20230515
  Transmission Date: 20230722
  Serious: Yes (Hospitalization, Other)
  Sender: FDA-Public Use
  Company Number: US-009507513-2109USA005085

PATIENT
  Sex: Male

DRUGS (18)
  1. JANUMET [Suspect]
     Active Substance: METFORMIN HYDROCHLORIDE\SITAGLIPTIN PHOSPHATE
     Indication: Diabetes mellitus
     Dosage: STRENGTH:50/1000 MG,1 DOSAGE FORM, TWICE DAILY(BID)
     Route: 048
  2. JANUMET [Suspect]
     Active Substance: METFORMIN HYDROCHLORIDE\SITAGLIPTIN PHOSPHATE
     Indication: Blood glucose abnormal
     Dosage: 50/1000 MG DOSE TABLET
     Route: 048
     Dates: end: 202212
  3. GLIMEPIRIDE [Concomitant]
     Active Substance: GLIMEPIRIDE
     Indication: Diabetes mellitus
     Dosage: UNK
  4. PRINIVIL [Concomitant]
     Active Substance: LISINOPRIL
  5. ZETIA [Concomitant]
     Active Substance: EZETIMIBE
  6. LORAZEPAM [Concomitant]
     Active Substance: LORAZEPAM
  7. ZYRTEC [Concomitant]
     Active Substance: CETIRIZINE HYDROCHLORIDE
  8. ASPIRIN [Concomitant]
     Active Substance: ASPIRIN
  9. MINERALS\VITAMINS [Concomitant]
     Active Substance: MINERALS\VITAMINS
  10. CHOLECALCIFEROL [Concomitant]
     Active Substance: CHOLECALCIFEROL
  11. OSTEO BI-FLEX JOINT HEALTH TRIPLE STRENGTH [Concomitant]
  12. VITAMIN C [Concomitant]
     Active Substance: ASCORBIC ACID
  13. B50 [Concomitant]
  14. MAGNESIUM [Concomitant]
     Active Substance: MAGNESIUM
  15. HERBALS\TURMERIC [Concomitant]
     Active Substance: HERBALS\TURMERIC
     Dosage: 900 (UNIT NOT REPORTED)
  16. TAMSULOSIN [Concomitant]
     Active Substance: TAMSULOSIN
  17. FUROSEMIDE [Concomitant]
     Active Substance: FUROSEMIDE
  18. METOPROLOL [Concomitant]
     Active Substance: METOPROLOL

REACTIONS (13)
  - Cardiac operation [Not Recovered/Not Resolved]
  - Dyspnoea [Not Recovered/Not Resolved]
  - Diet noncompliance [Unknown]
  - Blood glucose increased [Not Recovered/Not Resolved]
  - Blood glucose increased [Not Recovered/Not Resolved]
  - Blood glucose increased [Unknown]
  - Product use issue [Unknown]
  - Product dose omission issue [Unknown]
  - Inability to afford medication [Unknown]
  - Product use issue [Unknown]
  - Product dose omission issue [Unknown]
  - Product use issue [Unknown]
  - Product dose omission issue [Unknown]

NARRATIVE: CASE EVENT DATE: 20210101
